FAERS Safety Report 14962030 (Version 1)
Quarter: 2018Q2

REPORT INFORMATION
  Report Type: Spontaneous
  Country: DE (occurrence: DE)
  Receive Date: 20180601
  Receipt Date: 20180601
  Transmission Date: 20180711
  Serious: Yes (Other)
  Sender: FDA-Public Use
  Company Number: DE-DRREDDYS-GER/GER/18/0099746

PATIENT
  Sex: Male

DRUGS (11)
  1. BISOPROLOL [Suspect]
     Active Substance: BISOPROLOL
     Indication: PRODUCT USED FOR UNKNOWN INDICATION
     Dosage: 0-1-0-1
  2. NOVOTHYRAL 100MG [Suspect]
     Active Substance: LEVOTHYROXINE SODIUM\LIOTHYRONINE SODIUM
     Indication: PRODUCT USED FOR UNKNOWN INDICATION
     Dosage: 1-0-0
  3. SPIRONOLACTONE. [Suspect]
     Active Substance: SPIRONOLACTONE
     Indication: PRODUCT USED FOR UNKNOWN INDICATION
     Dosage: 1-0-0
  4. COLECALCIFEROL 20.000 IE [Suspect]
     Active Substance: CHOLECALCIFEROL
     Indication: PRODUCT USED FOR UNKNOWN INDICATION
     Dosage: ALLE 4 WOCHEN 1 KAPSEL
  5. URIDUCT 2 MG [Suspect]
     Active Substance: DOXAZOSIN MESYLATE
     Indication: PRODUCT USED FOR UNKNOWN INDICATION
     Dosage: 1-0-0
  6. SIMVASTATIN. [Suspect]
     Active Substance: SIMVASTATIN
     Indication: PRODUCT USED FOR UNKNOWN INDICATION
     Dosage: 0-0-1
  7. TARGIN 10/5MG [Suspect]
     Active Substance: NALOXONE HYDROCHLORIDE\OXYCODONE HYDROCHLORIDE
     Indication: PRODUCT USED FOR UNKNOWN INDICATION
     Dosage: 1-0-0-1
  8. DIGIMERCK 0,1MG [Suspect]
     Active Substance: DIGITOXIN
     Indication: PRODUCT USED FOR UNKNOWN INDICATION
     Dosage: 1-0-0
  9. ALLOPURINOL. [Suspect]
     Active Substance: ALLOPURINOL
     Indication: PRODUCT USED FOR UNKNOWN INDICATION
     Dosage: 0-0-1
  10. TORASEMID 10MG [Suspect]
     Active Substance: TORSEMIDE
     Indication: PRODUCT USED FOR UNKNOWN INDICATION
     Dosage: 1-0-0
  11. ELIQUIS [Suspect]
     Active Substance: APIXABAN
     Indication: PRODUCT USED FOR UNKNOWN INDICATION
     Dosage: 1-0-1

REACTIONS (1)
  - Lenticular opacities [Unknown]
